FAERS Safety Report 4660610-3 (Version None)
Quarter: 2005Q2

REPORT INFORMATION
  Report Type: 
  Country: None (occurrence: None)
  Receive Date: 20050512
  Receipt Date: 20050128
  Transmission Date: 20051028
  Serious: Yes (Hospitalization, Disabling)
  Sender: FDA-Public Use
  Company Number: US-ROCHE-394224

PATIENT
  Age: 17 Year
  Sex: Male
  Weight: 84.8 kg

DRUGS (2)
  1. ACCUTANE [Suspect]
     Indication: ACNE
     Route: 048
     Dates: start: 19990624, end: 20000120
  2. ACCUTANE [Suspect]
     Route: 048
     Dates: start: 20011219, end: 20011219

REACTIONS (17)
  - ANAEMIA [None]
  - ANXIETY [None]
  - CHILLS [None]
  - COLITIS [None]
  - COLITIS ULCERATIVE [None]
  - GASTROINTESTINAL DISORDER [None]
  - HAEMORRHOIDS [None]
  - INFLAMMATORY BOWEL DISEASE [None]
  - INTESTINAL HAEMORRHAGE [None]
  - MENTAL DISORDER [None]
  - MULTI-ORGAN DISORDER [None]
  - NAUSEA [None]
  - PROCTITIS [None]
  - PYREXIA [None]
  - RECTAL DISCHARGE [None]
  - RECTAL HAEMORRHAGE [None]
  - VOMITING [None]
